FAERS Safety Report 21967296 (Version 1)
Quarter: 2023Q1

REPORT INFORMATION
  Report Type: Spontaneous
  Country: US (occurrence: US)
  Receive Date: 20230208
  Receipt Date: 20230208
  Transmission Date: 20230418
  Serious: Yes (Other)
  Sender: FDA-Public Use
  Company Number: US-JNJFOC-20230208077

PATIENT
  Age: 58 Year
  Sex: Female

DRUGS (3)
  1. BACITRACIN ZINC\NEOMYCIN\POLYMYXIN B SULFATE [Suspect]
     Active Substance: BACITRACIN ZINC\NEOMYCIN\POLYMYXIN B SULFATE
     Indication: Wound
     Route: 061
  2. BACITRACIN ZINC\NEOMYCIN\POLYMYXIN B SULFATE [Suspect]
     Active Substance: BACITRACIN ZINC\NEOMYCIN\POLYMYXIN B SULFATE
     Indication: Postoperative care
  3. BACITRACIN ZINC\NEOMYCIN\POLYMYXIN B SULFATE [Suspect]
     Active Substance: BACITRACIN ZINC\NEOMYCIN\POLYMYXIN B SULFATE
     Indication: Diarrhoea

REACTIONS (3)
  - Product use in unapproved indication [Recovered/Resolved]
  - Product administered at inappropriate site [Recovered/Resolved]
  - Anaphylactic reaction [Recovered/Resolved]
